FAERS Safety Report 9795870 (Version 2)
Quarter: 2014Q1

REPORT INFORMATION
  Report Type: Spontaneous
  Country: JP (occurrence: JP)
  Receive Date: 20140103
  Receipt Date: 20140103
  Transmission Date: 20141002
  Serious: Yes (Death)
  Sender: FDA-Public Use
  Company Number: JP-BAYER-2013-127564

PATIENT
  Age: 60 Year
  Sex: Female

DRUGS (2)
  1. STIVARGA [Suspect]
     Indication: COLORECTAL CANCER
     Dosage: 120 MG, QD
     Route: 048
     Dates: start: 20131011, end: 20131108
  2. STIVARGA [Suspect]
     Indication: COLORECTAL CANCER
     Dosage: 120 MG, QD
     Route: 048
     Dates: start: 2013, end: 20131213

REACTIONS (4)
  - Colorectal cancer [Fatal]
  - Dysphonia [Not Recovered/Not Resolved]
  - Liver function test abnormal [Unknown]
  - Stomatitis [Not Recovered/Not Resolved]
